FAERS Safety Report 5964344-4 (Version None)
Quarter: 2008Q4

REPORT INFORMATION
  Report Type: 
  Country: None (occurrence: None)
  Receive Date: 20081124
  Receipt Date: 20081113
  Transmission Date: 20090506
  Serious: Yes (Hospitalization)
  Sender: FDA-Public Use
  Company Number: ES-PFIZER INC-2006127910

PATIENT
  Sex: Male
  Weight: 68 kg

DRUGS (5)
  1. SU-011,248 [Suspect]
     Indication: METASTATIC RENAL CELL CARCINOMA
     Route: 048
     Dates: start: 20060303
  2. EUTIROX [Concomitant]
     Route: 048
     Dates: start: 20060531
  3. HYDROCORTISONE [Concomitant]
     Route: 048
     Dates: start: 20061002
  4. ALDACTONE [Concomitant]
     Route: 048
     Dates: start: 20061002
  5. ORFIDAL [Concomitant]
     Route: 048
     Dates: start: 20061002

REACTIONS (1)
  - ACUTE PRERENAL FAILURE [None]
